FAERS Safety Report 6108435-6 (Version None)
Quarter: 2009Q1

REPORT INFORMATION
  Report Type: 
  Country: None (occurrence: None)
  Receive Date: 20090309
  Receipt Date: 20090306
  Transmission Date: 20090719
  Serious: Yes (Life-Threatening, Other)
  Sender: FDA-Public Use
  Company Number: FI-WYE-G03237909

PATIENT
  Age: 38 Year
  Sex: Male

DRUGS (3)
  1. TORISEL [Suspect]
     Indication: METASTATIC RENAL CELL CARCINOMA
     Route: 042
     Dates: start: 20090225
  2. DEXAMETHASONE [Concomitant]
     Indication: PROPHYLAXIS
     Dosage: UNSPECIFIED
  3. TAVEGYL [Concomitant]
     Indication: PROPHYLAXIS
     Dosage: UNSPECIFIED

REACTIONS (7)
  - DRUG HYPERSENSITIVITY [None]
  - DYSPNOEA [None]
  - ERYTHEMA [None]
  - FLUSHING [None]
  - INFUSION RELATED REACTION [None]
  - LOSS OF CONSCIOUSNESS [None]
  - PHOTOPSIA [None]
